FAERS Safety Report 14179895 (Version 4)
Quarter: 2022Q1

REPORT INFORMATION
  Report Type: Spontaneous
  Country: US (occurrence: US)
  Receive Date: 20171110
  Receipt Date: 20220214
  Transmission Date: 20220423
  Serious: Yes (Other)
  Sender: FDA-Public Use
  Company Number: PHEH2017US036380

PATIENT
  Sex: Female

DRUGS (1)
  1. TASIGNA [Suspect]
     Active Substance: NILOTINIB
     Indication: Chronic myeloid leukaemia
     Dosage: 300 MG, BID
     Route: 048
     Dates: start: 20140101, end: 20170601

REACTIONS (32)
  - Mitral valve incompetence [Unknown]
  - Tricuspid valve incompetence [Unknown]
  - Cataract [Unknown]
  - Arteriosclerosis coronary artery [Unknown]
  - Type IIa hyperlipidaemia [Unknown]
  - Peripheral vascular disorder [Unknown]
  - Chronic kidney disease [Unknown]
  - Coronary artery disease [Unknown]
  - Syncope [Unknown]
  - Trigger finger [Unknown]
  - Obesity [Unknown]
  - Essential hypertension [Unknown]
  - Gait disturbance [Unknown]
  - Hypoaesthesia [Unknown]
  - Muscle spasms [Unknown]
  - Muscular weakness [Unknown]
  - Back pain [Unknown]
  - Restless legs syndrome [Unknown]
  - Hyperlipidaemia [Unknown]
  - Arthritis [Unknown]
  - Pain in extremity [Unknown]
  - Injury [Unknown]
  - Gastrooesophageal reflux disease [Unknown]
  - Dyspnoea [Unknown]
  - Anaemia [Unknown]
  - Rash [Unknown]
  - Fatigue [Unknown]
  - Peripheral arterial occlusive disease [Unknown]
  - Arteriosclerosis [Unknown]
  - Pain [Unknown]
  - Emotional distress [Unknown]
  - Anxiety [Unknown]

NARRATIVE: CASE EVENT DATE: 20170101
